FAERS Safety Report 4620381-3 (Version None)
Quarter: 2005Q1

REPORT INFORMATION
  Report Type: 
  Country: None (occurrence: None)
  Receive Date: 20050321
  Receipt Date: 20050321
  Transmission Date: 20050727
  Serious: Yes (Life-Threatening, Hospitalization)
  Sender: FDA-Public Use
  Company Number: None

PATIENT
  Age: 24 Year
  Sex: Male

DRUGS (6)
  1. QUETIAPINE [Suspect]
  2. MIRTAZAPINE [Suspect]
  3. HEPARIN [Concomitant]
  4. ESOMEPRAZOLE [Concomitant]
  5. CLONAZEPAM [Concomitant]
  6. BROMOCRIPTINE [Concomitant]

REACTIONS (1)
  - PANCYTOPENIA [None]
